FAERS Safety Report 18307063 (Version 1)
Quarter: 2020Q3

REPORT INFORMATION
  Report Type: Spontaneous
  Country: CN (occurrence: CN)
  Receive Date: 20200924
  Receipt Date: 20200924
  Transmission Date: 20201103
  Serious: Yes (Other)
  Sender: FDA-Public Use
  Company Number: CN-ASTRAZENECA-2020SF18202

PATIENT
  Age: 53 Year
  Sex: Female

DRUGS (4)
  1. MORPHINE [Concomitant]
     Active Substance: MORPHINE
     Indication: ANALGESIC THERAPY
     Route: 048
  2. IRESSA [Suspect]
     Active Substance: GEFITINIB
     Indication: LUNG NEOPLASM MALIGNANT
     Route: 048
     Dates: start: 201712, end: 20190913
  3. TAGRISSO [Suspect]
     Active Substance: OSIMERTINIB
     Route: 048
     Dates: start: 202005
  4. TAGRISSO [Suspect]
     Active Substance: OSIMERTINIB
     Route: 048
     Dates: start: 20190913, end: 202005

REACTIONS (7)
  - Metastases to bone marrow [Unknown]
  - Vomiting [Recovering/Resolving]
  - Drug ineffective [Unknown]
  - Drug resistance [Unknown]
  - Myalgia [Unknown]
  - Metastases to central nervous system [Unknown]
  - Inability to afford medication [Unknown]

NARRATIVE: CASE EVENT DATE: 201909
